FAERS Safety Report 24981656 (Version 1)
Quarter: 2025Q1

REPORT INFORMATION
  Report Type: Spontaneous
  Country: FR (occurrence: None)
  Receive Date: 20250217
  Receipt Date: 20250217
  Transmission Date: 20250408
  Serious: Yes (Hospitalization, Other)
  Sender: FDA-CTU
  Company Number: None

PATIENT
  Sex: Female
  Weight: 45 kg

DRUGS (9)
  1. SINGULAIR [Suspect]
     Active Substance: MONTELUKAST SODIUM
     Indication: Asthma
     Dates: start: 20000101
  2. SINGULAIR [Suspect]
     Active Substance: MONTELUKAST SODIUM
     Indication: Rhinitis allergic
  3. Advair diskus (fluticasone/salmeterol 100/50) [Concomitant]
  4. Ventolin (albuterol inhaler) [Concomitant]
  5. Cranberry supplements [Concomitant]
  6. VITAMIN C [Concomitant]
     Active Substance: ASCORBIC ACID
  7. VITAMIN D [Concomitant]
     Active Substance: VITAMIN D NOS
  8. MAGNESIUM GLYCINATE [Concomitant]
     Active Substance: MAGNESIUM GLYCINATE
  9. PROBIOTICS NOS [Concomitant]
     Active Substance: PROBIOTICS NOS

REACTIONS (24)
  - Sleep terror [None]
  - Obsessive-compulsive symptom [None]
  - Disturbance in attention [None]
  - Headache [None]
  - Brain fog [None]
  - Dehydration [None]
  - Suicide attempt [None]
  - Bipolar disorder [None]
  - Generalised anxiety disorder [None]
  - Withdrawal syndrome [None]
  - Fatigue [None]
  - Apathy [None]
  - Amnesia [None]
  - Sensory disturbance [None]
  - Aphasia [None]
  - Depression [None]
  - Dizziness [None]
  - Balance disorder [None]
  - Coordination abnormal [None]
  - Thirst [None]
  - Muscle spasms [None]
  - Asthenia [None]
  - Social avoidant behaviour [None]
  - Indifference [None]
